FAERS Safety Report 19749840 (Version 2)
Quarter: 2021Q3

REPORT INFORMATION
  Report Type: Spontaneous
  Country: TN (occurrence: TN)
  Receive Date: 20210826
  Receipt Date: 20210929
  Transmission Date: 20211014
  Serious: Yes (Hospitalization, Other)
  Sender: FDA-Public Use
  Company Number: TN-ACCORD-236722

PATIENT
  Age: 68 Year
  Sex: Male

DRUGS (4)
  1. METFORMIN [Concomitant]
     Active Substance: METFORMIN HYDROCHLORIDE
     Indication: TYPE 2 DIABETES MELLITUS
  2. CISPLATIN. [Concomitant]
     Active Substance: CISPLATIN
     Indication: NASOPHARYNGEAL CANCER METASTATIC
     Dosage: FIRST LINE CHEMOTHERAPY, ON DAY 1
     Dates: start: 2019
  3. GEMCITABINE/GEMCITABINE HYDROCHLORIDE [Suspect]
     Active Substance: GEMCITABINE\GEMCITABINE HYDROCHLORIDE
     Indication: NASOPHARYNGEAL CANCER METASTATIC
     Dosage: FIRST LINE CHEMOTHERAPY, ON DAYS 1. ?1 G/M^2
     Dates: start: 2019
  4. PREDNISOLONE. [Concomitant]
     Active Substance: PREDNISOLONE
     Indication: LYMPHANGITIS
     Dates: start: 2019

REACTIONS (3)
  - Off label use [Unknown]
  - Atrial fibrillation [Recovered/Resolved]
  - Drug intolerance [Recovered/Resolved]
